FAERS Safety Report 13346381 (Version 1)
Quarter: 2017Q1

REPORT INFORMATION
  Report Type: Spontaneous
  Country: US (occurrence: US)
  Receive Date: 20170317
  Receipt Date: 20170317
  Transmission Date: 20170428
  Serious: No
  Sender: FDA-Public Use
  Company Number: ALCN2017US001956

PATIENT
  Age: 2 Year
  Sex: Male

DRUGS (1)
  1. CIPRODEX [Suspect]
     Active Substance: CIPROFLOXACIN HYDROCHLORIDE\DEXAMETHASONE
     Indication: EAR INFECTION
     Dosage: 1 GTT, BID
     Route: 001
     Dates: start: 20170308

REACTIONS (3)
  - Ear canal abrasion [Recovering/Resolving]
  - Ear haemorrhage [Recovering/Resolving]
  - Foreign body [Recovering/Resolving]

NARRATIVE: CASE EVENT DATE: 20170308
